FAERS Safety Report 24534495 (Version 1)
Quarter: 2024Q4

REPORT INFORMATION
  Report Type: Report from Study
  Country: JP (occurrence: JP)
  Receive Date: 20241022
  Receipt Date: 20241022
  Transmission Date: 20250114
  Serious: Yes (Death)
  Sender: SHIONOGI
  Company Number: JP-shionogi-202400001482

PATIENT
  Age: 92 Year
  Sex: Female
  Weight: 45 kg

DRUGS (7)
  1. CEFIDEROCOL [Suspect]
     Active Substance: CEFIDEROCOL
     Indication: Pseudomonas infection
     Route: 041
     Dates: start: 20240730, end: 20240815
  2. MEROPENEM [Concomitant]
     Active Substance: MEROPENEM
     Indication: Product used for unknown indication
     Route: 065
     Dates: start: 20240708, end: 20240727
  3. VANCOMYCIN HYDROCHLORIDE [Concomitant]
     Active Substance: VANCOMYCIN HYDROCHLORIDE
     Indication: Product used for unknown indication
     Route: 065
     Dates: start: 20240708, end: 20240730
  4. FLUCONAZOLE [Concomitant]
     Active Substance: FLUCONAZOLE
     Indication: Product used for unknown indication
     Route: 065
     Dates: start: 20240726, end: 20240730
  5. LEVOFLOXACIN HEMIHYDRATE [Concomitant]
     Active Substance: LEVOFLOXACIN
     Indication: Product used for unknown indication
     Route: 065
     Dates: start: 20240728
  6. DAPTOMYCIN [Concomitant]
     Active Substance: DAPTOMYCIN
     Indication: Product used for unknown indication
     Route: 065
     Dates: start: 20240730, end: 20240815
  7. MICAFUNGIN SODIUM [Concomitant]
     Active Substance: MICAFUNGIN SODIUM
     Indication: Product used for unknown indication
     Route: 065
     Dates: start: 20240730, end: 20240815

REACTIONS (3)
  - Blood creatinine increased [Fatal]
  - Pneumonia aspiration [Fatal]
  - Asphyxia [Fatal]

NARRATIVE: CASE EVENT DATE: 20240804
